FAERS Safety Report 6624416-8 (Version None)
Quarter: 2010Q1

REPORT INFORMATION
  Report Type: 
  Country: None (occurrence: None)
  Receive Date: 20100310
  Receipt Date: 20091014
  Transmission Date: 20100710
  Serious: No
  Sender: FDA-Public Use
  Company Number: US-BIOGENIDEC-2009BI033456

PATIENT
  Sex: Female

DRUGS (1)
  1. AVONEX [Suspect]
     Indication: MULTIPLE SCLEROSIS
     Route: 030
     Dates: start: 19970715, end: 19980701

REACTIONS (6)
  - ANXIETY [None]
  - BACK PAIN [None]
  - CELLULITIS [None]
  - DIZZINESS [None]
  - EMOTIONAL DISTRESS [None]
  - PAIN IN EXTREMITY [None]
